FAERS Safety Report 6119361-0 (Version None)
Quarter: 2009Q1

REPORT INFORMATION
  Report Type: 
  Country: None (occurrence: None)
  Receive Date: 20090316
  Receipt Date: 20090305
  Transmission Date: 20090719
  Serious: Yes (Hospitalization)
  Sender: FDA-Public Use
  Company Number: FR-AVENTIS-200910926FR

PATIENT
  Age: 39 Year
  Sex: Male

DRUGS (6)
  1. RIFINAH [Suspect]
     Indication: TUBERCULOSIS
     Route: 048
     Dates: start: 20090120, end: 20090127
  2. FLUDROCORTISONE [Suspect]
     Indication: ADRENAL INSUFFICIENCY
     Route: 048
     Dates: start: 20000101, end: 20090101
  3. FLUDROCORTISONE [Suspect]
     Route: 048
     Dates: start: 20090101
  4. HYDROCORTISONE [Suspect]
     Indication: ADRENAL INSUFFICIENCY
     Route: 048
     Dates: start: 20000101, end: 20090101
  5. HYDROCORTISONE [Suspect]
     Route: 048
     Dates: start: 20090101
  6. SULFARLEM                          /00558302/ [Concomitant]
     Route: 048

REACTIONS (2)
  - ADRENOCORTICAL INSUFFICIENCY ACUTE [None]
  - DRUG INTERACTION [None]
